FAERS Safety Report 17163617 (Version 1)
Quarter: 2019Q4

REPORT INFORMATION
  Report Type: Spontaneous
  Country: CN (occurrence: CN)
  Receive Date: 20191217
  Receipt Date: 20191217
  Transmission Date: 20200122
  Serious: Yes (Other)
  Sender: FDA-Public Use
  Company Number: CN-ROCHE-2493600

PATIENT
  Age: 69 Year
  Sex: Male
  Weight: 76 kg

DRUGS (14)
  1. CARBOPLATIN. [Suspect]
     Active Substance: CARBOPLATIN
     Indication: LUNG ADENOCARCINOMA
     Route: 041
     Dates: start: 20190903, end: 20190903
  2. SODIUM CHLORIDE. [Concomitant]
     Active Substance: SODIUM CHLORIDE
     Dosage: SOLVENT FOR BEVACIZUMAB
     Route: 041
     Dates: start: 20191128, end: 20191128
  3. SODIUM CHLORIDE. [Concomitant]
     Active Substance: SODIUM CHLORIDE
     Dosage: SOLVENT FOR PEMBROLIZUMAB INJECTION
     Route: 041
     Dates: start: 20190903, end: 20190903
  4. PEMBROLIZUMAB. [Suspect]
     Active Substance: PEMBROLIZUMAB
     Dosage: ON DAY 1
     Route: 041
     Dates: start: 20191128, end: 20191128
  5. PACLITAXEL LIPOSOME [Suspect]
     Active Substance: PACLITAXEL
     Indication: LUNG ADENOCARCINOMA
     Dosage: ON DAY 1
     Route: 041
     Dates: start: 20190903, end: 20190903
  6. SODIUM CHLORIDE. [Concomitant]
     Active Substance: SODIUM CHLORIDE
     Dosage: SOLVENT FOR BEVACIZUMAB
     Route: 041
     Dates: start: 20190903, end: 20190903
  7. GLUCOSE [Concomitant]
     Active Substance: DEXTROSE
     Dosage: ONCE FOR CARBOPLATIN INJECTION, ONCE FOR PACLITAXEL LIPOSOME FOR INJECTION
     Route: 041
     Dates: start: 20190903, end: 20190903
  8. SODIUM CHLORIDE. [Concomitant]
     Active Substance: SODIUM CHLORIDE
     Dosage: LOT NO. N19062304, SOLVENT FOR PEMBROLIZUMAB INJECTION
     Route: 041
     Dates: start: 20191128, end: 20191128
  9. AVASTIN [Suspect]
     Active Substance: BEVACIZUMAB
     Indication: LUNG ADENOCARCINOMA
     Dosage: ON DAY 1
     Route: 041
     Dates: start: 20190903, end: 20190903
  10. PEMBROLIZUMAB. [Suspect]
     Active Substance: PEMBROLIZUMAB
     Indication: LUNG ADENOCARCINOMA
     Dosage: ON DAY 1
     Route: 041
     Dates: start: 20190903, end: 20190903
  11. GLUCOSE [Concomitant]
     Active Substance: DEXTROSE
     Dosage: SOLVENT FOR PACLITAXEL LIPOSOME FOR INJECTION
     Route: 041
     Dates: start: 20191128, end: 20191128
  12. AVASTIN [Suspect]
     Active Substance: BEVACIZUMAB
     Route: 041
     Dates: start: 20191128, end: 20191128
  13. PACLITAXEL LIPOSOME [Suspect]
     Active Substance: PACLITAXEL
     Dosage: ON DAY 1
     Route: 041
     Dates: start: 20191128, end: 20191128
  14. CYCLOPHOSPHAMIDE. [Concomitant]
     Active Substance: CYCLOPHOSPHAMIDE
     Indication: LUNG ADENOCARCINOMA
     Route: 065
     Dates: start: 20190903

REACTIONS (4)
  - Platelet count decreased [Recovering/Resolving]
  - Neutrophil count decreased [Recovering/Resolving]
  - White blood cell count decreased [Recovering/Resolving]
  - Bone marrow failure [Recovering/Resolving]

NARRATIVE: CASE EVENT DATE: 20190909
